FAERS Safety Report 5722414-X (Version None)
Quarter: 2008Q2

REPORT INFORMATION
  Report Type: 
  Country: None (occurrence: None)
  Receive Date: 20080429
  Receipt Date: 20070709
  Transmission Date: 20081010
  Serious: No
  Sender: FDA-Public Use
  Company Number: US-ASTRAZENECA-2007UW16068

PATIENT
  Age: 86 Year
  Sex: Male
  Weight: 79.4 kg

DRUGS (8)
  1. NEXIUM [Suspect]
     Indication: DYSPEPSIA
     Route: 048
     Dates: start: 20010101
  2. GABAPENTIN [Concomitant]
  3. HYTRIN [Concomitant]
  4. METROGEL [Concomitant]
  5. NASONEX [Concomitant]
  6. LOPROX [Concomitant]
  7. VESICARE [Concomitant]
  8. MUCINEX [Concomitant]

REACTIONS (2)
  - RHINORRHOEA [None]
  - THROAT IRRITATION [None]
